FAERS Safety Report 7341337-6 (Version None)
Quarter: 2011Q1

REPORT INFORMATION
  Report Type: 
  Country: None (occurrence: None)
  Receive Date: 20110228
  Receipt Date: 20110210
  Transmission Date: 20110831
  Serious: Yes (Hospitalization, Other)
  Sender: FDA-Public Use
  Company Number: 2009S1003631

PATIENT
  Age: 65 Year
  Sex: Female
  Weight: 168 kg

DRUGS (3)
  1. LISINOPRIL AND HYDROCHLOROTHIAZIDE [Concomitant]
  2. DULCOLAX [Suspect]
     Indication: COLONOSCOPY
     Dosage: 4 UNIT; TOTAL; PO
     Route: 048
     Dates: start: 20071105, end: 20071105
  3. PHOSPHOSODA FLAVOR NOT SPECIFIED [Suspect]
     Indication: COLONOSCOPY
     Dosage: 45 ML; X1; PO
     Route: 048
     Dates: start: 20071105, end: 20071105

REACTIONS (10)
  - NAUSEA [None]
  - CHILLS [None]
  - INFLUENZA LIKE ILLNESS [None]
  - HEADACHE [None]
  - FATIGUE [None]
  - INSOMNIA [None]
  - CHEST PAIN [None]
  - RENAL FAILURE ACUTE [None]
  - ABDOMINAL DISTENSION [None]
  - TOXICITY TO VARIOUS AGENTS [None]
